FAERS Safety Report 11090168 (Version 2)
Quarter: 2015Q3

REPORT INFORMATION
  Report Type: Spontaneous
  Country: US (occurrence: US)
  Receive Date: 20150505
  Receipt Date: 20150924
  Transmission Date: 20151125
  Serious: No
  Sender: FDA-Public Use
  Company Number: US-LUNDBECK-DKLU1110442

PATIENT
  Sex: Female

DRUGS (2)
  1. NORTHERA [Suspect]
     Active Substance: DROXIDOPA
     Indication: AUTONOMIC FAILURE SYNDROME
     Route: 048
     Dates: start: 20150319
  2. NORTHERA [Suspect]
     Active Substance: DROXIDOPA
     Indication: AUTONOMIC NEUROPATHY

REACTIONS (8)
  - Nasopharyngitis [Unknown]
  - Hyperhidrosis [Unknown]
  - Head discomfort [Unknown]
  - Drug ineffective [Unknown]
  - Pyrexia [Unknown]
  - Urinary incontinence [Unknown]
  - Blood glucose increased [Unknown]
  - Blood pressure fluctuation [Unknown]
